FAERS Safety Report 8610975-2 (Version None)
Quarter: 2012Q3

REPORT INFORMATION
  Report Type: 
  Country: None (occurrence: None)
  Receive Date: 20120808
  Receipt Date: 20120723
  Transmission Date: 20120928
  Serious: Yes (Hospitalization)
  Sender: FDA-Public Use
  Company Number: INT_00094_2012

PATIENT
  Age: 90 Year
  Sex: Male

DRUGS (9)
  1. CEFTRIAXONE SODIUM [Suspect]
     Indication: PRODUCT USED FOR UNKNOWN INDICATION
     Dosage: (2 G PER DAY, INTRAVENOUS (NOT OTHERWISE SPECIFIED))
     Route: 042
  2. VANCOMYCIN [Concomitant]
  3. LOSARTAN POTASSIUM [Concomitant]
  4. ASPIRIN [Concomitant]
  5. TRAMADOL HCL [Concomitant]
  6. PREDNISONE [Concomitant]
  7. METOPROLOL TARTRATE [Concomitant]
  8. SIMVASTATIN [Concomitant]
  9. HYDRALAZINE HCL [Concomitant]

REACTIONS (8)
  - SOMNOLENCE [None]
  - HEPATOTOXICITY [None]
  - HEPATIC ENCEPHALOPATHY [None]
  - CONFUSIONAL STATE [None]
  - ASTERIXIS [None]
  - AUTOIMMUNE HEPATITIS [None]
  - LETHARGY [None]
  - ACUTE HEPATIC FAILURE [None]
